FAERS Safety Report 12885214 (Version 1)
Quarter: 2016Q4

REPORT INFORMATION
  Report Type: Spontaneous
  Country: US (occurrence: US)
  Receive Date: 20161026
  Receipt Date: 20161026
  Transmission Date: 20170207
  Serious: No
  Sender: FDA-Public Use
  Company Number: US-009507513-1610USA012808

PATIENT
  Sex: Male

DRUGS (2)
  1. GRASTEK [Suspect]
     Active Substance: PHLEUM PRATENSE POLLEN
     Dosage: UNK
     Route: 060
  2. GRASTEK [Suspect]
     Active Substance: PHLEUM PRATENSE POLLEN
     Dosage: UNK
     Route: 060

REACTIONS (2)
  - Paraesthesia oral [Unknown]
  - Dyspnoea [Unknown]
